FAERS Safety Report 23423219 (Version 2)
Quarter: 2024Q2

REPORT INFORMATION
  Report Type: Report from Study
  Country: US (occurrence: US)
  Receive Date: 20240119
  Receipt Date: 20240429
  Transmission Date: 20240717
  Serious: No
  Sender: FDA-Public Use
  Company Number: US-AstraZeneca-CH-00545040A

PATIENT
  Age: 71 Year
  Sex: Male

DRUGS (1)
  1. ULTOMIRIS [Suspect]
     Active Substance: RAVULIZUMAB-CWVZ
     Indication: Myasthenia gravis
     Dosage: UNK
     Route: 041
     Dates: start: 20231005

REACTIONS (4)
  - Liver disorder [Unknown]
  - Pain [Unknown]
  - Discomfort [Unknown]
  - Incorrect drug administration rate [Unknown]

NARRATIVE: CASE EVENT DATE: 20240101
